FAERS Safety Report 6244298-6 (Version None)
Quarter: 2009Q2

REPORT INFORMATION
  Report Type: 
  Country: None (occurrence: None)
  Receive Date: 20090623
  Receipt Date: 20090612
  Transmission Date: 20091009
  Serious: Yes (Other)
  Sender: FDA-Public Use
  Company Number: GXKR2009GB06870

PATIENT
  Age: 22 Year

DRUGS (1)
  1. CEFTRIAXONE [Suspect]
     Dosage: 4 G, INTRAVENOUS
     Route: 042

REACTIONS (4)
  - DYSPNOEA [None]
  - NAUSEA [None]
  - PARAESTHESIA [None]
  - PRURITUS GENERALISED [None]
